FAERS Safety Report 9481905 (Version 1)
Quarter: 2013Q3

REPORT INFORMATION
  Report Type: Spontaneous
  Country: IL (occurrence: IL)
  Receive Date: 20130828
  Receipt Date: 20130828
  Transmission Date: 20140515
  Serious: Yes (Other)
  Sender: FDA-Public Use
  Company Number: IL-BRISTOL-MYERS SQUIBB COMPANY-19201680

PATIENT
  Age: 68 Year
  Sex: Female

DRUGS (2)
  1. BYETTA [Suspect]
     Indication: DIABETES MELLITUS
     Dosage: INTER FOR 2 WEEKS?DOSE REDUCED TO 10MCG/D MORE THAN YR AGO
     Route: 058
  2. INSULIN [Concomitant]

REACTIONS (3)
  - Spinal column injury [Unknown]
  - Fall [Unknown]
  - Dyspepsia [Unknown]
